FAERS Safety Report 6122930-5 (Version None)
Quarter: 2009Q1

REPORT INFORMATION
  Report Type: 
  Country: None (occurrence: None)
  Receive Date: 20090318
  Receipt Date: 20090309
  Transmission Date: 20090719
  Serious: Yes (Other)
  Sender: FDA-Public Use
  Company Number: PHEH2009US01445

PATIENT
  Sex: Female

DRUGS (4)
  1. ENABLEX [Suspect]
     Indication: URINARY INCONTINENCE
     Dosage: 7.5 MG, QD
     Route: 048
     Dates: start: 20090129, end: 20090205
  2. ENABLEX [Suspect]
     Indication: URGE INCONTINENCE
  3. DILTIAZEM [Concomitant]
     Indication: HYPERTENSION
     Dosage: 180 MG, QD FOR MORE THAN 6 YEARS
     Route: 048
  4. VITAMINS [Concomitant]

REACTIONS (7)
  - BLINDNESS TRANSIENT [None]
  - CONSTIPATION [None]
  - DIARRHOEA [None]
  - DRY MOUTH [None]
  - POLLAKIURIA [None]
  - URINARY INCONTINENCE [None]
  - VISION BLURRED [None]
